FAERS Safety Report 7964599-0 (Version None)
Quarter: 2011Q4

REPORT INFORMATION
  Report Type: 
  Country: None (occurrence: None)
  Receive Date: 20111208
  Receipt Date: 20111205
  Transmission Date: 20120403
  Serious: Yes (Death)
  Sender: FDA-Public Use
  Company Number: US-PFIZER INC-IDA-00479

PATIENT
  Age: 50 Year
  Sex: Female

DRUGS (7)
  1. TRAZODONE HCL [Suspect]
     Dosage: UNK
     Route: 048
  2. BUSPIRONE HCL [Suspect]
     Dosage: UNK
     Route: 048
  3. DIAZEPAM [Suspect]
     Dosage: UNK
     Route: 048
  4. TEMAZEPAM [Suspect]
     Dosage: UNK
     Route: 048
  5. PROPRANOLOL HCL [Suspect]
     Dosage: UNK
     Route: 048
  6. DOXEPIN HCL [Suspect]
     Dosage: UNK
     Route: 048
  7. ACETAMINOPHEN/DIPHENHYDRAMINE HYDROCHLORIDE [Suspect]
     Dosage: UNK
     Route: 048

REACTIONS (3)
  - TOXICITY TO VARIOUS AGENTS [None]
  - CARDIO-RESPIRATORY ARREST [None]
  - COMPLETED SUICIDE [None]
